FAERS Safety Report 15801052 (Version 1)
Quarter: 2019Q1

REPORT INFORMATION
  Report Type: Spontaneous
  Country: GB (occurrence: GB)
  Receive Date: 20190109
  Receipt Date: 20190109
  Transmission Date: 20190417
  Serious: Yes (Disabling, Other)
  Sender: FDA-Public Use
  Company Number: GB-AUROBINDO-AUR-APL-2018-064027

PATIENT
  Sex: Female

DRUGS (4)
  1. LOPERAMIDE 2 MG CAPSULES, HARD [Suspect]
     Active Substance: LOPERAMIDE
     Indication: PRODUCT USED FOR UNKNOWN INDICATION
     Dosage: UNK, 2 CAPSULES A DAY
     Route: 048
  2. LOPERAMIDE 2 MG CAPSULES, HARD [Suspect]
     Active Substance: LOPERAMIDE
     Dosage: UNK, 10 CAPSULES A DAY
     Route: 048
  3. LOPERAMIDE 2 MG CAPSULES, HARD [Suspect]
     Active Substance: LOPERAMIDE
     Dosage: UNK, DOUBLED THE DOSE
     Route: 048
  4. LOPERAMIDE 2 MG CAPSULES, HARD [Suspect]
     Active Substance: LOPERAMIDE
     Dosage: UNK
     Route: 048

REACTIONS (4)
  - Dysstasia [Unknown]
  - Dysgraphia [Unknown]
  - Gait inability [Unknown]
  - Overdose [Unknown]
